FAERS Safety Report 8811055 (Version 1)
Quarter: 2012Q4

REPORT INFORMATION
  Report Type: Spontaneous
  Country: US (occurrence: None)
  Receive Date: 20120924
  Receipt Date: 20120924
  Transmission Date: 20130627
  Serious: Yes (Other)
  Sender: FDA-Public Use
  Company Number: DKLU1084639

PATIENT
  Age: 88 Year
  Sex: Female

DRUGS (2)
  1. TRANXENE [Suspect]
     Indication: ANXIETY
     Route: 048
     Dates: start: 201208
  2. LEXAPRO FILM-COATED TABLETS (ESCITALOPRAM-TABLETS) (ESCITALOPRAM) [Concomitant]

REACTIONS (2)
  - Fall [None]
  - Joint swelling [None]
